FAERS Safety Report 10928065 (Version 13)
Quarter: 2021Q4

REPORT INFORMATION
  Report Type: Spontaneous
  Country: US (occurrence: US)
  Receive Date: 20150319
  Receipt Date: 20211210
  Transmission Date: 20220303
  Serious: Yes (Other)
  Sender: FDA-Public Use
  Company Number: US-PFIZER INC-2015090173

PATIENT
  Age: 72 Year
  Sex: Female
  Weight: 41 kg

DRUGS (6)
  1. LYRICA [Suspect]
     Active Substance: PREGABALIN
     Indication: Back pain
     Dosage: 100 MG, 1X/DAY (EVERY NIGHT AT BED TIME)
     Route: 048
     Dates: start: 20120126
  2. LYRICA [Suspect]
     Active Substance: PREGABALIN
     Indication: Lumbar radiculopathy
  3. POTASSIUM [Concomitant]
     Active Substance: POTASSIUM
     Dosage: UNK, DAILY
     Route: 048
     Dates: start: 201410
  4. XARELTO [Concomitant]
     Active Substance: RIVAROXABAN
     Indication: Anticoagulant therapy
     Dosage: 15 MG, DAILY
     Route: 048
     Dates: start: 201410
  5. METOPROLOL TARTRATE [Concomitant]
     Active Substance: METOPROLOL TARTRATE
     Indication: Blood pressure abnormal
     Dosage: 25 MG, DAILY (1/2 TABLET IN THE MORNING AND 1/2 TABLET IN THE EVENING)
     Route: 048
  6. TYLENOL [Concomitant]
     Active Substance: ACETAMINOPHEN
     Indication: Back pain
     Dosage: 2 DF, AS NEEDED (ABOUT 2 TABLETS A DAY)

REACTIONS (10)
  - Hip fracture [Unknown]
  - Fall [Unknown]
  - Illness [Unknown]
  - Hypotension [Unknown]
  - Bradyphrenia [Unknown]
  - Crying [Unknown]
  - Amnesia [Unknown]
  - Hypoaesthesia [Unknown]
  - Malaise [Unknown]
  - Excessive eye blinking [Unknown]

NARRATIVE: CASE EVENT DATE: 20141001
